FAERS Safety Report 17765653 (Version 1)
Quarter: 2020Q2

REPORT INFORMATION
  Report Type: Spontaneous
  Country: US (occurrence: US)
  Receive Date: 20200509
  Receipt Date: 20200509
  Transmission Date: 20200714
  Serious: Yes (Other)
  Sender: FDA-Public Use
  Company Number: None

PATIENT
  Age: 30 Year
  Sex: Female
  Weight: 58.5 kg

DRUGS (1)
  1. NULEAF NATURALS FULL SPECTRUM CBD OIL [Suspect]
     Active Substance: CANNABIDIOL\HERBALS
     Indication: BACK PAIN
     Route: 055
     Dates: start: 20200501, end: 20200508

REACTIONS (1)
  - Tooth disorder [None]

NARRATIVE: CASE EVENT DATE: 20200501
